FAERS Safety Report 12069696 (Version 1)
Quarter: 2016Q1

REPORT INFORMATION
  Report Type: Spontaneous
  Country: US (occurrence: US)
  Receive Date: 20160211
  Receipt Date: 20160211
  Transmission Date: 20160526
  Serious: No
  Sender: FDA-Public Use
  Company Number: US-PFIZER INC-2015155471

PATIENT
  Age: 70 Year
  Sex: Male
  Weight: 82 kg

DRUGS (23)
  1. CARVEDILOL. [Concomitant]
     Active Substance: CARVEDILOL
     Indication: HYPERTENSION
     Dosage: 6 MG, 2X/DAY
  2. LISINOPRIL. [Concomitant]
     Active Substance: LISINOPRIL
     Indication: CARDIAC DISORDER
     Dosage: 10 MG, DAILY
     Route: 048
  3. BABY ASPIRIN [Concomitant]
     Active Substance: ASPIRIN
     Dosage: UNK (STARTED TAKING A YEAR AGO)
  4. ASPIRIN. [Concomitant]
     Active Substance: ASPIRIN
     Dosage: 81 MG, DAILY
     Route: 048
  5. DOCUSATE SODIUM/SENNOSIDE A+B [Concomitant]
     Indication: CONSTIPATION
     Dosage: 2 DF, AS NEEDED (DOCUSATE SODIUM: 50MG, SENNOSIDE A+B: 8.6 MG) 2 TABS BY MOUTH DAILY AS NEEDED
     Route: 048
  6. IBUPROFEN. [Concomitant]
     Active Substance: IBUPROFEN
     Indication: ARTHRALGIA
     Dosage: 600 MG, AS NEEDED ( 1 TAB BY MOUTH EVERY 8 HOURS AS NEEDED)
     Route: 048
  7. EQV ARTIFICIAL TEARS [Concomitant]
     Dosage: 1 GTT, 1X/DAY
  8. LISINOPRIL. [Concomitant]
     Active Substance: LISINOPRIL
     Indication: HYPERTENSION
  9. LISINOPRIL. [Concomitant]
     Active Substance: LISINOPRIL
     Indication: BLOOD PRESSURE ABNORMAL
     Dosage: 40 MG, 1X/DAY
  10. TOPROL XL [Concomitant]
     Active Substance: METOPROLOL SUCCINATE
     Dosage: 12.5 MG, DAILY
     Route: 048
  11. LEVITRA [Concomitant]
     Active Substance: VARDENAFIL HYDROCHLORIDE TRIHYDRATE
     Indication: ERECTILE DYSFUNCTION
     Dosage: 10 MG, 1X/DAY
     Route: 048
  12. CAVERJECT [Suspect]
     Active Substance: ALPROSTADIL
     Indication: ERECTILE DYSFUNCTION
     Dosage: 40 UG, UNK (3X WEEKLY)
     Dates: start: 201506
  13. SPIRONOLACTONE. [Concomitant]
     Active Substance: SPIRONOLACTONE
     Indication: BLOOD PRESSURE ABNORMAL
     Dosage: 25 MG, 1X/DAY
  14. LIPITOR [Concomitant]
     Active Substance: ATORVASTATIN CALCIUM
     Indication: BLOOD CHOLESTEROL
     Dosage: 20 MG, DAILY
     Route: 048
  15. LIPITOR [Concomitant]
     Active Substance: ATORVASTATIN CALCIUM
     Indication: HYPERTENSION
     Dosage: 10 MG, DAILY
     Route: 048
  16. CAVERJECT [Suspect]
     Active Substance: ALPROSTADIL
     Dosage: 40 MG, UNK (ONCE A WEEK OR ONCE EVERY TWO WEEKS
     Dates: start: 201505
  17. ATORVASTATIN [Concomitant]
     Active Substance: ATORVASTATIN
     Dosage: UNK (TAKING A YEAR AGO)
  18. KETOROLAC TROMETHAMINE. [Concomitant]
     Active Substance: KETOROLAC TROMETHAMINE
     Dosage: 1 GTT, 2X/DAY (FOR 7 DAYS THEN STOP)
  19. CARVEDILOL. [Concomitant]
     Active Substance: CARVEDILOL
     Indication: CARDIAC DISORDER
  20. SPIRONOLACTONE. [Concomitant]
     Active Substance: SPIRONOLACTONE
     Indication: CARDIAC DISORDER
  21. EDEX [Concomitant]
     Active Substance: ALPROSTADIL
     Dosage: 40 UG, UNK (1X ONLY AS DIRECTED BY MD )
     Route: 017
  22. GOLYTELY [Concomitant]
     Active Substance: POLYETHYLENE GLYCOL 3350\POTASSIUM CHLORIDE\SODIUM BICARBONATE\SODIUM CHLORIDE\SODIUM SULFATE ANHYDROUS
     Dosage: UNK
  23. CAVERJECT [Suspect]
     Active Substance: ALPROSTADIL
     Dosage: 20 MG, UNK (ONCE A WEEK OR ONCE EVERY TWO WEEKS
     Dates: start: 201505

REACTIONS (1)
  - Drug ineffective [Not Recovered/Not Resolved]

NARRATIVE: CASE EVENT DATE: 2015
